FAERS Safety Report 4361370-6 (Version None)
Quarter: 2004Q2

REPORT INFORMATION
  Report Type: 
  Country: None (occurrence: None)
  Receive Date: 20040517
  Receipt Date: 20040503
  Transmission Date: 20050107
  Serious: Yes (Hospitalization)
  Sender: FDA-Public Use
  Company Number: 04P-163-0259408-00

PATIENT
  Age: 72 Year
  Sex: Female
  Weight: 69.8539 kg

DRUGS (7)
  1. HUMIRA [Suspect]
     Indication: RHEUMATOID ARTHRITIS
     Dosage: 40 MG, 1 IN 2 WK, SUBCUTANEOUS
     Route: 058
     Dates: start: 20030519, end: 20030707
  2. PAMIDRONATE DISODIUM [Concomitant]
  3. CANDESARTAN CILEXETIL [Concomitant]
  4. PREDNISONE [Concomitant]
  5. PROPACET 100 [Concomitant]
  6. FERROUS GLUCONATE [Concomitant]
  7. CALCIUM [Concomitant]

REACTIONS (6)
  - ACCIDENT [None]
  - CONDITION AGGRAVATED [None]
  - DRUG INEFFECTIVE [None]
  - FALL [None]
  - HIP FRACTURE [None]
  - PAIN IN EXTREMITY [None]
